FAERS Safety Report 6520083-2 (Version None)
Quarter: 2009Q4

REPORT INFORMATION
  Report Type: 
  Country: None (occurrence: None)
  Receive Date: 20091229
  Receipt Date: 20091217
  Transmission Date: 20100525
  Serious: Yes (Other)
  Sender: FDA-Public Use
  Company Number: PHHY2009CA56808

PATIENT

DRUGS (10)
  1. DIOVAN [Suspect]
     Indication: HYPERTENSION
     Dosage: 160MG DAILY
  2. SIMVASTATIN [Concomitant]
     Dosage: 40 MG, QHS
  3. ASPIRIN [Concomitant]
     Dosage: 80 MG, UNK
  4. ATENOLOL [Concomitant]
     Dosage: 100 MG, UNK
  5. ATENOLOL [Concomitant]
     Dosage: 50 MG, UNK
  6. ALTACE [Concomitant]
     Dosage: 200 MG, UNK
  7. NSAID'S [Concomitant]
     Dosage: UNK
  8. FUROSEMIDE [Concomitant]
     Dosage: 20 MG, QD
  9. NORVASC [Concomitant]
     Dosage: 5 MG, UNK
  10. KAYEXALATE [Concomitant]
     Dosage: 3 TIMES A WEEK

REACTIONS (3)
  - HYPERKALAEMIA [None]
  - HYPOALDOSTERONISM [None]
  - RENAL IMPAIRMENT [None]
